FAERS Safety Report 25665687 (Version 1)
Quarter: 2025Q3

REPORT INFORMATION
  Report Type: Spontaneous
  Country: US (occurrence: None)
  Receive Date: 20250811
  Receipt Date: 20250811
  Transmission Date: 20251021
  Serious: Yes (Hospitalization)
  Sender: FDA-CTU
  Company Number: None

PATIENT
  Sex: Male

DRUGS (2)
  1. TOBRAMYCIN [Suspect]
     Active Substance: TOBRAMYCIN
     Indication: Cystic fibrosis
     Dates: start: 20240606
  2. CAYSTON INH [Concomitant]

REACTIONS (3)
  - Nephrolithiasis [None]
  - Loss of consciousness [None]
  - Blood glucose decreased [None]
